FAERS Safety Report 5534163-1 (Version None)
Quarter: 2007Q4

REPORT INFORMATION
  Report Type: 
  Country: None (occurrence: None)
  Receive Date: 20071129
  Receipt Date: 20071129
  Transmission Date: 20080405
  Serious: Yes (Hospitalization)
  Sender: FDA-Public Use
  Company Number: None

PATIENT
  Sex: Female
  Weight: 90.71 kg

DRUGS (15)
  1. CARBOPLATIN [Suspect]
     Dosage: 710 MG
     Dates: end: 20071114
  2. TAXOTERE [Suspect]
     Dosage: 159 MG
     Dates: end: 20071114
  3. CARDIZEM [Concomitant]
  4. CARTA XT [Concomitant]
  5. COMPAZINE [Concomitant]
  6. DEXAMETHASONE TAB [Concomitant]
  7. FENTANYL TRANSDERMAL SYSTEM [Concomitant]
  8. LISINOPRIL [Concomitant]
  9. NORCO [Concomitant]
  10. PAXIL [Concomitant]
  11. PRILOSEC [Concomitant]
  12. TRICOR [Concomitant]
  13. TYLENOL EX-STR [Concomitant]
  14. ZOFRAN [Concomitant]
  15. SYNTHROID [Concomitant]

REACTIONS (12)
  - ANAEMIA [None]
  - ATRIAL FIBRILLATION [None]
  - BALANCE DISORDER [None]
  - BLOOD PRESSURE SYSTOLIC DECREASED [None]
  - FEBRILE NEUTROPENIA [None]
  - FIBRIN D DIMER INCREASED [None]
  - HYPOVOLAEMIA [None]
  - MALAISE [None]
  - PALPITATIONS [None]
  - PRESYNCOPE [None]
  - SINUS TACHYCARDIA [None]
  - SUPRAVENTRICULAR TACHYCARDIA [None]
